FAERS Safety Report 17291423 (Version 1)
Quarter: 2020Q1

REPORT INFORMATION
  Report Type: Report from Study
  Country: US (occurrence: US)
  Receive Date: 20200121
  Receipt Date: 20200121
  Transmission Date: 20200409
  Serious: Yes (Other)
  Sender: FDA-Public Use
  Company Number: US-AMGEN-USASL2020007130

PATIENT
  Age: 15 Year
  Sex: Female

DRUGS (1)
  1. ENBREL [Suspect]
     Active Substance: ETANERCEPT
     Indication: JUVENILE IDIOPATHIC ARTHRITIS
     Dosage: UNK
     Route: 065

REACTIONS (6)
  - Autoscopy [Unknown]
  - Dehydration [Unknown]
  - Macular oedema [Unknown]
  - Uveitis [Unknown]
  - Panic reaction [Unknown]
  - Eye disorder [Unknown]

NARRATIVE: CASE EVENT DATE: 201906
